FAERS Safety Report 22152738 (Version 1)
Quarter: 2023Q1

REPORT INFORMATION
  Report Type: Report from Study
  Country: CA (occurrence: CA)
  Receive Date: 20230329
  Receipt Date: 20230329
  Transmission Date: 20230418
  Serious: Yes (Hospitalization)
  Sender: FDA-Public Use
  Company Number: CA-MYLANLABS-2023M1033555

PATIENT
  Sex: Male

DRUGS (16)
  1. OLANZAPINE [Suspect]
     Active Substance: OLANZAPINE
     Indication: Schizoaffective disorder
     Dosage: 35 MILLIGRAM, QD
     Route: 048
  2. OLANZAPINE [Suspect]
     Active Substance: OLANZAPINE
     Indication: Schizophrenia
  3. OLANZAPINE [Suspect]
     Active Substance: OLANZAPINE
     Indication: Substance use disorder
  4. OLANZAPINE [Suspect]
     Active Substance: OLANZAPINE
     Indication: Antisocial personality disorder
  5. VALPROIC ACID [Suspect]
     Active Substance: VALPROIC ACID
     Indication: Schizoaffective disorder
     Dosage: 1000 MILLIGRAM, QD
     Route: 065
  6. VALPROIC ACID [Suspect]
     Active Substance: VALPROIC ACID
     Indication: Schizophrenia
  7. VALPROIC ACID [Suspect]
     Active Substance: VALPROIC ACID
     Indication: Substance use disorder
  8. VALPROIC ACID [Suspect]
     Active Substance: VALPROIC ACID
     Indication: Antisocial personality disorder
  9. FLUPENTIXOL [Suspect]
     Active Substance: FLUPENTIXOL
     Indication: Schizoaffective disorder
     Dosage: 120 MILLIGRAM, LONG-ACTING INJECTABLE
     Route: 065
  10. FLUPENTIXOL [Suspect]
     Active Substance: FLUPENTIXOL
     Indication: Schizophrenia
  11. FLUPENTIXOL [Suspect]
     Active Substance: FLUPENTIXOL
     Indication: Substance use disorder
  12. FLUPENTIXOL [Suspect]
     Active Substance: FLUPENTIXOL
     Indication: Antisocial personality disorder
  13. LOXAPINE [Suspect]
     Active Substance: LOXAPINE
     Indication: Schizoaffective disorder
     Dosage: 300 MILLIGRAM, QD
     Route: 065
  14. LOXAPINE [Suspect]
     Active Substance: LOXAPINE
     Indication: Schizophrenia
  15. LOXAPINE [Suspect]
     Active Substance: LOXAPINE
     Indication: Substance use disorder
  16. LOXAPINE [Suspect]
     Active Substance: LOXAPINE
     Indication: Antisocial personality disorder

REACTIONS (1)
  - Drug ineffective [Unknown]
